FAERS Safety Report 9012728 (Version 1)
Quarter: 2013Q1

REPORT INFORMATION
  Report Type: Spontaneous
  Country: US (occurrence: US)
  Receive Date: 20130114
  Receipt Date: 20130114
  Transmission Date: 20140127
  Serious: Yes (Other)
  Sender: FDA-Public Use
  Company Number: US-009507513-1301USA001944

PATIENT
  Age: 21 Year
  Sex: Female

DRUGS (2)
  1. SINGULAIR [Suspect]
     Indication: ASTHMA
     Dosage: 1 DF, QD
     Route: 048
  2. LORATADINE [Suspect]
     Indication: URTICARIA CHRONIC
     Dosage: 1 DF, QID
     Route: 048

REACTIONS (18)
  - Intentional overdose [Unknown]
  - Condition aggravated [Unknown]
  - Depersonalisation [Unknown]
  - Depression [Unknown]
  - Dissociation [Unknown]
  - Dizziness [Unknown]
  - Drug interaction [Unknown]
  - Burning sensation [Unknown]
  - Hypersensitivity [Unknown]
  - Visual acuity reduced [Unknown]
  - Muscle spasms [Unknown]
  - Nervous system disorder [Unknown]
  - Paraesthesia [Unknown]
  - Prescribed overdose [Unknown]
  - Somnolence [Unknown]
  - Tinnitus [Unknown]
  - Urticaria [Unknown]
  - Hallucination [Unknown]
